FAERS Safety Report 11377050 (Version 2)
Quarter: 2015Q3

REPORT INFORMATION
  Report Type: Report from Study
  Country: JP (occurrence: JP)
  Receive Date: 20150813
  Receipt Date: 20150904
  Transmission Date: 20151125
  Serious: Yes (Hospitalization, Other)
  Sender: FDA-Public Use
  Company Number: JP-EISAI MEDICAL RESEARCH-EC-2015-009548

PATIENT
  Age: 81 Year
  Sex: Female

DRUGS (10)
  1. RABEPRAZOLE NA [Concomitant]
  2. ARICEPT [Suspect]
     Active Substance: DONEPEZIL HYDROCHLORIDE
     Route: 048
     Dates: start: 20140607
  3. METHYCOBAL [Concomitant]
     Active Substance: METHYLCOBALAMIN
  4. CARBOCISTEINE [Concomitant]
     Active Substance: CARBOCYSTEINE
  5. LOXONIN [Concomitant]
     Active Substance: LOXOPROFEN SODIUM
  6. URDENACIN [Concomitant]
  7. ARICEPT [Suspect]
     Active Substance: DONEPEZIL HYDROCHLORIDE
     Indication: DEMENTIA ALZHEIMER^S TYPE
     Route: 048
     Dates: start: 20140530, end: 20140606
  8. REBAMIPIDE [Concomitant]
     Active Substance: REBAMIPIDE
  9. TACROLIMUS HYDRATE [Concomitant]
     Active Substance: TACROLIMUS
  10. OPALMON [Concomitant]
     Active Substance: LIMAPROST

REACTIONS (3)
  - Cardiac failure [Recovering/Resolving]
  - Atrial fibrillation [Recovered/Resolved]
  - Pneumonia bacterial [Recovered/Resolved]

NARRATIVE: CASE EVENT DATE: 20141203
